FAERS Safety Report 9285053 (Version 1)
Quarter: 2013Q2

REPORT INFORMATION
  Report Type: Report from Study
  Country: CA (occurrence: CA)
  Receive Date: 20130513
  Receipt Date: 20130513
  Transmission Date: 20140414
  Serious: Yes (Other)
  Sender: FDA-Public Use
  Company Number: CA-JNJFOC-20130502786

PATIENT
  Age: 58 Year
  Sex: Male
  Weight: 69.9 kg

DRUGS (6)
  1. REMICADE [Suspect]
     Indication: CROHN^S DISEASE
     Route: 042
     Dates: start: 20130314
  2. REMICADE [Suspect]
     Indication: CROHN^S DISEASE
     Route: 042
     Dates: start: 20090724
  3. RABEPRAZOLE [Concomitant]
     Route: 065
  4. CARVEDILOL [Concomitant]
     Route: 065
  5. COVERSYL [Concomitant]
     Route: 065
  6. METHOTREXATE [Concomitant]
     Route: 065

REACTIONS (1)
  - Implantable defibrillator insertion [Recovering/Resolving]
